FAERS Safety Report 7723487-5 (Version None)
Quarter: 2011Q3

REPORT INFORMATION
  Report Type: 
  Country: None (occurrence: None)
  Receive Date: 20110901
  Receipt Date: 20110829
  Transmission Date: 20111222
  Serious: Yes (Other)
  Sender: FDA-Public Use
  Company Number: US-PFIZER INC-2008028714

PATIENT
  Sex: Female
  Weight: 77.098 kg

DRUGS (4)
  1. LYRICA [Suspect]
     Dosage: 75 MG
     Route: 048
     Dates: start: 20080301, end: 20080101
  2. ZOLOFT [Concomitant]
     Dosage: 100 MG, UNK
     Route: 048
  3. HYDROCODONE [Concomitant]
     Dosage: 7.5 MG, 2X/DAY
     Route: 048
  4. BACTRIM [Concomitant]

REACTIONS (6)
  - CONSTIPATION [None]
  - ABDOMINAL DISTENSION [None]
  - WEIGHT INCREASED [None]
  - NAUSEA [None]
  - FUNCTIONAL GASTROINTESTINAL DISORDER [None]
  - FEELING ABNORMAL [None]
